FAERS Safety Report 9670168 (Version 1)
Quarter: 2013Q4

REPORT INFORMATION
  Report Type: Spontaneous
  Country: US (occurrence: None)
  Receive Date: 20131024
  Receipt Date: 20131024
  Transmission Date: 20140711
  Serious: Yes (Other)
  Sender: FDA-Public Use
  Company Number: 2013038496

PATIENT
  Sex: Female

DRUGS (1)
  1. HIZENTRA (IMMUNOGLOBULIN HUMAN NORMAL) [Suspect]
     Dosage: 6 G  1X/WEEK  SUBCUTANEOUS)
     Route: 058

REACTIONS (1)
  - Meningitis aseptic [None]
